FAERS Safety Report 17488438 (Version 14)
Quarter: 2022Q1

REPORT INFORMATION
  Report Type: Report from Study
  Country: DE (occurrence: DE)
  Receive Date: 20200303
  Receipt Date: 20220302
  Transmission Date: 20220423
  Serious: Yes (Other)
  Sender: FDA-Public Use
  Company Number: NVSC2020DE058732

PATIENT
  Age: 77 Year
  Sex: Female
  Weight: 72.7 kg

DRUGS (13)
  1. KISQALI [Suspect]
     Active Substance: RIBOCICLIB
     Indication: Breast cancer metastatic
     Dosage: 600 MG, QD 21 DAYS INTAKE 7 DAYS PAUSE
     Route: 065
     Dates: start: 20200127, end: 20200223
  2. KISQALI [Suspect]
     Active Substance: RIBOCICLIB
     Indication: Breast cancer
     Dosage: 600 MG, QD 21 DAYS INTAKE 7 DAYS PAUSE
     Route: 065
     Dates: start: 20200225, end: 20200518
  3. KISQALI [Suspect]
     Active Substance: RIBOCICLIB
     Dosage: 600 MG, QD 21 DAYS INTAKE 7 DAYS PAUSE
     Route: 065
     Dates: start: 20200526, end: 20201215
  4. KISQALI [Suspect]
     Active Substance: RIBOCICLIB
     Dosage: 600 MG, QD 21 DAYS INTAKE 7 DAYS PAUSE
     Route: 065
     Dates: start: 20201217, end: 20210201
  5. KISQALI [Suspect]
     Active Substance: RIBOCICLIB
     Dosage: 600 MG, QD 21 DAYS INTAKE 7 DAYS PAUSE
     Route: 065
     Dates: start: 20210204
  6. ZOLEDRONIC ACID [Suspect]
     Active Substance: ZOLEDRONIC ACID
     Indication: Metastases to bone
     Dosage: 3.3 MG, Q4W (EVERY FOUR WEEKS)
     Route: 042
     Dates: start: 20191206, end: 20200817
  7. FULVESTRANT [Suspect]
     Active Substance: FULVESTRANT
     Indication: Breast cancer metastatic
     Dosage: 500 MG, Q2W (EVERY 2 WEEKS, DAILY DOSE)
     Route: 030
     Dates: start: 20191230, end: 20200126
  8. FULVESTRANT [Suspect]
     Active Substance: FULVESTRANT
     Indication: Breast cancer
     Dosage: 500 MG, Q4W (EVERY 4 WEEKS, DAILY DOSE)
     Route: 030
     Dates: start: 20200127
  9. DENOSUMAB [Concomitant]
     Active Substance: DENOSUMAB
     Indication: Product used for unknown indication
     Dosage: 120 MG, QMO (EVERY FOUR WEEKS)
     Route: 058
     Dates: start: 20200914
  10. BISOPROLOL [Concomitant]
     Active Substance: BISOPROLOL
     Indication: Hypertension
     Dosage: 5 MG, BID
     Route: 048
     Dates: start: 1990
  11. HYDROCHLOROTHIAZIDE\RAMIPRIL [Concomitant]
     Active Substance: HYDROCHLOROTHIAZIDE\RAMIPRIL
     Indication: Hypertension
     Dosage: 1 DF (5/25 MG), QD
     Route: 048
     Dates: start: 1990
  12. RAMIPRIL [Concomitant]
     Active Substance: RAMIPRIL
     Indication: Hypertension
     Dosage: 5 MG, QD
     Route: 048
     Dates: start: 1990
  13. LERCANIDIPINE [Concomitant]
     Active Substance: LERCANIDIPINE
     Indication: Hypertension
     Dosage: 1 DF (18,88 MG) QD (MORNING)
     Route: 048
     Dates: start: 20200303

REACTIONS (7)
  - Diabetes mellitus [Not Recovered/Not Resolved]
  - Blood pressure increased [Not Recovered/Not Resolved]
  - Eastern Cooperative Oncology Group performance status worsened [Not Recovered/Not Resolved]
  - Dyspnoea [Not Recovered/Not Resolved]
  - Pruritus [Recovering/Resolving]
  - Anaemia [Recovered/Resolved]
  - Blood creatinine increased [Not Recovered/Not Resolved]

NARRATIVE: CASE EVENT DATE: 20200224
